FAERS Safety Report 9844526 (Version 3)
Quarter: 2014Q2

REPORT INFORMATION
  Report Type: Spontaneous
  Country: JP (occurrence: None)
  Receive Date: 20140123
  Receipt Date: 20140416
  Transmission Date: 20141212
  Serious: Yes (Hospitalization, Disabling, Other)
  Sender: FDA-Public Use
  Company Number: JP-RRD-14-00004

PATIENT
  Age: 15 Month
  Sex: Male
  Weight: 7.3 kg

DRUGS (3)
  1. COSMEGEN [Suspect]
     Indication: EMBRYONAL RHABDOMYOSARCOMA
     Dosage: 0.045 MG/KG, 1 IN 3 WK, NOT OTHERWISE SPECIFIED
     Route: 042
     Dates: start: 20120320, end: 20121217
  2. ONCOVIN [Suspect]
     Dosage: 1.5 MG/M2, 1 IN 1 WK NOT OTHERWISE SPECIFIED
     Route: 042
     Dates: start: 20120320, end: 20121217
  3. ENDOXAN [Concomitant]
     Indication: EMBRYONAL RHABDOMYOSARCOMA
     Dosage: (2200 MG/ME, 1 IN 3 WK)?(NOT OTHERWISE SPECIFIED)
     Route: 042
     Dates: start: 20120320, end: 20121217

REACTIONS (2)
  - Cytomegalovirus infection [None]
  - Cytomegalovirus chorioretinitis [None]
